FAERS Safety Report 23712277 (Version 2)
Quarter: 2024Q2

REPORT INFORMATION
  Report Type: Report from Study
  Country: US (occurrence: US)
  Receive Date: 20240405
  Receipt Date: 20240411
  Transmission Date: 20240715
  Serious: Yes (Other)
  Sender: FDA-Public Use
  Company Number: US-AGIOS-2403US03706

PATIENT
  Sex: Female

DRUGS (2)
  1. MITAPIVAT [Suspect]
     Active Substance: MITAPIVAT
     Indication: Melanocytic naevus
     Dosage: 5 MILLIGRAM
     Route: 048
     Dates: start: 20240206
  2. MITAPIVAT [Suspect]
     Active Substance: MITAPIVAT
     Dosage: 5 UNK
     Route: 065
     Dates: start: 20240216

REACTIONS (3)
  - Gastric haemorrhage [Not Recovered/Not Resolved]
  - Haemoglobin decreased [Unknown]
  - Off label use [Not Recovered/Not Resolved]
